FAERS Safety Report 5743081-5 (Version None)
Quarter: 2008Q2

REPORT INFORMATION
  Report Type: 
  Country: None (occurrence: None)
  Receive Date: 20080519
  Receipt Date: 20080509
  Transmission Date: 20081010
  Serious: Yes (Death, Other)
  Sender: FDA-Public Use
  Company Number: US-AMGEN-STX270465

PATIENT
  Sex: Male

DRUGS (2)
  1. ENBREL [Suspect]
     Indication: PSORIASIS
     Route: 058
     Dates: start: 20040227, end: 20040702
  2. UNSPECIFIED STEROIDS [Concomitant]
     Route: 061

REACTIONS (2)
  - DEATH [None]
  - DIFFUSE LARGE B-CELL LYMPHOMA [None]
